FAERS Safety Report 4780188-3 (Version None)
Quarter: 2005Q3

REPORT INFORMATION
  Report Type: 
  Country: None (occurrence: None)
  Receive Date: 20050927
  Receipt Date: 20050921
  Transmission Date: 20060218
  Serious: Yes (Life-Threatening, Hospitalization)
  Sender: FDA-Public Use
  Company Number: KR-SANOFI-SYNTHELABO-A01200506424

PATIENT
  Sex: Male
  Weight: 56 kg

DRUGS (3)
  1. ELOXATIN [Suspect]
     Indication: RECTAL CANCER
     Route: 042
     Dates: start: 20050901, end: 20050901
  2. FLUOROURACIL [Concomitant]
     Indication: RECTAL CANCER
     Route: 042
     Dates: start: 20050901, end: 20050901
  3. LEUCOVORIN [Concomitant]
     Indication: RECTAL CANCER
     Route: 042
     Dates: start: 20050901, end: 20050902

REACTIONS (3)
  - CHOLANGITIS ACUTE [None]
  - CHOLELITHIASIS [None]
  - PANCREATITIS ACUTE [None]
